FAERS Safety Report 8952948 (Version 1)
Quarter: 2012Q4

REPORT INFORMATION
  Report Type: 
  Country: US (occurrence: US)
  Receive Date: 20121203
  Receipt Date: 20121203
  Transmission Date: 20130627
  Serious: Yes (Other)
  Sender: FDA-Public Use
  Company Number: CHPA2012US024543

PATIENT
  Age: 60 Year
  Sex: Female

DRUGS (9)
  1. EXCEDRIN TENSION HEADACHE [Suspect]
     Indication: MUSCLE TIGHTNESS
     Dosage: Unk, Unk
  2. DRUG THERAPY NOS [Concomitant]
     Dosage: Unk, Unk
  3. DRUG THERAPY NOS [Concomitant]
     Dosage: Unk, Unk
  4. BAYER ASPIRIN [Concomitant]
     Dosage: Unk, Unk
  5. TYLENOL WITH CODEINE [Concomitant]
     Dosage: Unk, Unk
  6. MORPHINE [Concomitant]
     Dosage: Unk, Unk
  7. VICODIN [Concomitant]
     Indication: HEADACHE
     Dosage: Unk, Unk
  8. CODEINE [Concomitant]
     Indication: HEADACHE
     Dosage: Unk, Unk
  9. TYLENOL [Concomitant]
     Indication: HEADACHE
     Dosage: Unk, Unk

REACTIONS (5)
  - Concussion [Recovered/Resolved]
  - Head injury [Recovered/Resolved]
  - Dyspnoea [Recovered/Resolved]
  - Off label use [Unknown]
  - Expired drug administered [Unknown]
